FAERS Safety Report 16281232 (Version 1)
Quarter: 2019Q2

REPORT INFORMATION
  Report Type: Report from Study
  Country: None (occurrence: US)
  Receive Date: 20190507
  Receipt Date: 20190507
  Transmission Date: 20190711
  Serious: Yes (Other)
  Sender: FDA-Public Use
  Company Number: US-ABBVIE-19S-163-2768921-00

PATIENT
  Sex: Female

DRUGS (1)
  1. LUPRON [Suspect]
     Active Substance: LEUPROLIDE ACETATE
     Indication: PRODUCT USED FOR UNKNOWN INDICATION
     Route: 065

REACTIONS (12)
  - Cholelithiasis [Unknown]
  - Cataract [Unknown]
  - Chronic kidney disease [Unknown]
  - Crohn^s disease [Unknown]
  - Vitamin B12 deficiency [Unknown]
  - Cholelithiasis [Unknown]
  - Hypothyroidism [Unknown]
  - Cholelithiasis [Unknown]
  - Impaired gastric emptying [Unknown]
  - Depression [Unknown]
  - Impaired gastric emptying [Unknown]
  - Glucose tolerance impaired [Unknown]

NARRATIVE: CASE EVENT DATE: 2010
